FAERS Safety Report 9576972 (Version 1)
Quarter: 2013Q4

REPORT INFORMATION
  Report Type: Spontaneous
  Country: US (occurrence: US)
  Receive Date: 20131001
  Receipt Date: 20131001
  Transmission Date: 20140711
  Serious: No
  Sender: FDA-Public Use
  Company Number: US-AMGEN-USASP2013005528

PATIENT
  Sex: Female
  Weight: 98.41 kg

DRUGS (15)
  1. ENBREL [Suspect]
     Indication: RHEUMATOID ARTHRITIS
     Dosage: 50 MG, QWK
     Route: 058
  2. CELEBREX [Concomitant]
     Dosage: 200 MG, UNK
  3. AMLODIPINE [Concomitant]
     Dosage: 10 MG, UNK
  4. METHOTREXATE [Concomitant]
     Dosage: 2.5 MG, UNK
  5. LYRICA [Concomitant]
     Dosage: 100 MG, UNK
  6. SYNTHROID [Concomitant]
     Dosage: 100 MUG, UNK
  7. METFORMIN [Concomitant]
     Dosage: 100 MG, UNK
  8. FOLIC ACID [Concomitant]
     Dosage: 1 MG, UNK
  9. PREVACID [Concomitant]
     Dosage: 30 MG, UNK
  10. LEXAPRO [Concomitant]
     Dosage: 5 MG, UNK
  11. METANX [Concomitant]
     Dosage: UNK
  12. VITAMIN D                          /00107901/ [Concomitant]
     Dosage: 400 UNIT, UNK
  13. CALCIUM [Concomitant]
     Dosage: 500 UNK, UNK
  14. HYDROCHLOROTHIAZIDE W/TRIAMTERENE [Concomitant]
     Dosage: 25 - 50 MG
  15. MULTI [Concomitant]
     Dosage: UNK

REACTIONS (1)
  - Drug ineffective [Unknown]
